FAERS Safety Report 4563919-7 (Version None)
Quarter: 2005Q1

REPORT INFORMATION
  Report Type: 
  Country: None (occurrence: None)
  Receive Date: 20050121
  Receipt Date: 20050110
  Transmission Date: 20050727
  Serious: Yes (Life-Threatening, Hospitalization, Disabling, Other)
  Sender: FDA-Public Use
  Company Number: 2004053291

PATIENT
  Age: 67 Year
  Sex: Male
  Weight: 87.5442 kg

DRUGS (4)
  1. LIPITOR [Suspect]
     Indication: HYPERCHOLESTEROLAEMIA
     Dosage: 20 MG (20 MG, 1 IN 1 D), ORAL
     Route: 048
     Dates: start: 20001012, end: 20010101
  2. ROFECOXIB [Suspect]
     Indication: ARTHRALGIA
     Dosage: 25 MG (25 MG, 1 IN 1 D), ORAL
     Route: 048
     Dates: start: 20010401, end: 20010501
  3. IBUPROFEN [Concomitant]
  4. ACETAMINOPHEN [Concomitant]

REACTIONS (32)
  - ABDOMINAL DISTENSION [None]
  - ANOREXIA [None]
  - ARTHRALGIA [None]
  - ASCITES [None]
  - ASTHENIA [None]
  - CACHEXIA [None]
  - COAGULOPATHY [None]
  - COGNITIVE DISORDER [None]
  - DRUG INEFFECTIVE [None]
  - FATIGUE [None]
  - FEELING ABNORMAL [None]
  - GASTRODUODENITIS [None]
  - HAEMANGIOMA [None]
  - HEPATIC FAILURE [None]
  - HEPATITIS TOXIC [None]
  - HEPATOSPLENOMEGALY [None]
  - INADEQUATE ANALGESIA [None]
  - LYMPHADENOPATHY [None]
  - LYMPHOMA [None]
  - MALNUTRITION [None]
  - METASTATIC NEOPLASM [None]
  - MOBILITY DECREASED [None]
  - MUSCLE ATROPHY [None]
  - NAUSEA [None]
  - PAIN OF SKIN [None]
  - PORTAL HYPERTENSION [None]
  - PRURITUS [None]
  - RENAL FAILURE [None]
  - SLEEP DISORDER [None]
  - SPLENIC NEOPLASM MALIGNANCY UNSPECIFIED [None]
  - SPLENOMEGALY [None]
  - VARICES OESOPHAGEAL [None]
